FAERS Safety Report 8537660-X (Version None)
Quarter: 2012Q3

REPORT INFORMATION
  Report Type: 
  Country: None (occurrence: None)
  Receive Date: 20120725
  Receipt Date: 20120720
  Transmission Date: 20120928
  Serious: Yes (Hospitalization)
  Sender: FDA-Public Use
  Company Number: PHHY2012AR063097

PATIENT
  Sex: Female

DRUGS (1)
  1. GILENYA [Suspect]
     Indication: MULTIPLE SCLEROSIS
     Dosage: 1 DF, DAILY
     Route: 048
     Dates: start: 20100101

REACTIONS (4)
  - LIMB DISCOMFORT [None]
  - GAIT DISTURBANCE [None]
  - SWELLING [None]
  - ASTHENIA [None]
